FAERS Safety Report 24571210 (Version 1)
Quarter: 2024Q4

REPORT INFORMATION
  Report Type: Spontaneous
  Country: GB (occurrence: GB)
  Receive Date: 20241101
  Receipt Date: 20241101
  Transmission Date: 20250115
  Serious: Yes (Other)
  Sender: AUROBINDO
  Company Number: GB-MHRA-EMIS-6177-d273014e-4666-418c-be04-72fc8fbefba2

PATIENT
  Age: 47 Year
  Sex: Female
  Weight: 83 kg

DRUGS (3)
  1. TOPIRAMATE [Suspect]
     Active Substance: TOPIRAMATE
     Indication: Migraine
     Dosage: 1 DOSAGE FORM, ONCE A DAY
     Route: 065
     Dates: start: 20240828, end: 20241010
  2. TOPIRAMATE [Suspect]
     Active Substance: TOPIRAMATE
     Dosage: 1 DOSAGE FORM, EVERY OTHER DAY (ONE AT NIGHT FOR ONE WEEK THEN ONE TWICE A DAY)
     Route: 065
     Dates: start: 20240902, end: 20240923
  3. SUMATRIPTAN [Concomitant]
     Active Substance: SUMATRIPTAN
     Indication: Product used for unknown indication
     Dosage: 6 MILLIGRAM (50 MG)
     Route: 065
     Dates: start: 20240603, end: 20241017

REACTIONS (3)
  - Blood pressure increased [Recovered/Resolved]
  - Tinnitus [Recovered/Resolved]
  - Tremor [Recovered/Resolved]

NARRATIVE: CASE EVENT DATE: 20240916
